FAERS Safety Report 18954074 (Version 3)
Quarter: 2023Q2

REPORT INFORMATION
  Report Type: Spontaneous
  Country: US (occurrence: US)
  Receive Date: 20210301
  Receipt Date: 20230515
  Transmission Date: 20230722
  Serious: Yes (Other)
  Sender: FDA-Public Use
  Company Number: US-GILEAD-2021-0517961

PATIENT
  Sex: Female
  Weight: 81.179 kg

DRUGS (38)
  1. STRIBILD [Suspect]
     Active Substance: COBICISTAT\ELVITEGRAVIR\EMTRICITABINE\TENOFOVIR DISOPROXIL FUMARATE
     Indication: HIV infection
     Dosage: UNK
     Route: 048
     Dates: start: 2014
  2. STRIBILD [Suspect]
     Active Substance: COBICISTAT\ELVITEGRAVIR\EMTRICITABINE\TENOFOVIR DISOPROXIL FUMARATE
     Dosage: UNK
     Route: 048
     Dates: start: 2012, end: 2017
  3. STRIBILD [Suspect]
     Active Substance: COBICISTAT\ELVITEGRAVIR\EMTRICITABINE\TENOFOVIR DISOPROXIL FUMARATE
     Dosage: UNK
     Route: 048
     Dates: start: 201601, end: 201608
  4. GENVOYA [Concomitant]
     Active Substance: COBICISTAT\ELVITEGRAVIR\EMTRICITABINE\TENOFOVIR ALAFENAMIDE FUMARATE
  5. ASPIRIN [Concomitant]
     Active Substance: ASPIRIN
  6. CYCLOBENZAPRINE [Concomitant]
     Active Substance: CYCLOBENZAPRINE
  7. FOLIC ACID [Concomitant]
     Active Substance: FOLIC ACID
  8. HYDROXYCHLOROQUINE [Concomitant]
     Active Substance: HYDROXYCHLOROQUINE
  9. LIDOCAINE [Concomitant]
     Active Substance: LIDOCAINE
  10. MECLIZINE HYDROCHLORIDE [Concomitant]
     Active Substance: MECLIZINE HYDROCHLORIDE
  11. SIMVASTATIN [Concomitant]
     Active Substance: SIMVASTATIN
  12. VITAMIN B12 [Concomitant]
     Active Substance: CYANOCOBALAMIN
  13. VITAMIN D3 [Concomitant]
     Active Substance: CHOLECALCIFEROL
  14. LANSOPRAZOLE [Concomitant]
     Active Substance: LANSOPRAZOLE
  15. ZOLPIDEM [Concomitant]
     Active Substance: ZOLPIDEM TARTRATE
  16. FLUTICASONE [Concomitant]
     Active Substance: FLUTICASONE
  17. FLUOCINONIDE [Concomitant]
     Active Substance: FLUOCINONIDE
  18. RIFAMPIN [Concomitant]
     Active Substance: RIFAMPIN
  19. VITAMIN D2 [Concomitant]
     Active Substance: ERGOCALCIFEROL
  20. AMITRIPTYLINE [Concomitant]
     Active Substance: AMITRIPTYLINE
  21. FAMOTIDINE [Concomitant]
     Active Substance: FAMOTIDINE
  22. HYDROCHLOROTHIAZIDE [Concomitant]
     Active Substance: HYDROCHLOROTHIAZIDE
  23. LOSARTAN [Concomitant]
     Active Substance: LOSARTAN
  24. METRONIDAZOLE [Concomitant]
     Active Substance: METRONIDAZOLE
  25. CEFDINIR [Concomitant]
     Active Substance: CEFDINIR
  26. CIPROFLOXACIN [Concomitant]
     Active Substance: CIPROFLOXACIN
  27. AZITHROMYCIN [Concomitant]
     Active Substance: AZITHROMYCIN
  28. LYRICA [Concomitant]
     Active Substance: PREGABALIN
  29. CETIRIZINE [Concomitant]
     Active Substance: CETIRIZINE HYDROCHLORIDE
  30. PROMETHAZINE [Concomitant]
     Active Substance: PROMETHAZINE HYDROCHLORIDE
  31. OLOPATADINE [Concomitant]
     Active Substance: OLOPATADINE
  32. PREMARIN [Concomitant]
     Active Substance: ESTROGENS, CONJUGATED
  33. PREDNISONE [Concomitant]
     Active Substance: PREDNISONE
  34. ESOMEPRAZOLE [Concomitant]
     Active Substance: ESOMEPRAZOLE
  35. DULOXETINE [Concomitant]
     Active Substance: DULOXETINE
  36. MEDROL [Concomitant]
     Active Substance: METHYLPREDNISOLONE
  37. GABAPENTIN [Concomitant]
     Active Substance: GABAPENTIN
  38. TIZANIDINE [Concomitant]
     Active Substance: TIZANIDINE

REACTIONS (11)
  - Osteoporosis [Not Recovered/Not Resolved]
  - End stage renal disease [Not Recovered/Not Resolved]
  - Chronic kidney disease [Not Recovered/Not Resolved]
  - Pain [Not Recovered/Not Resolved]
  - Anxiety [Not Recovered/Not Resolved]
  - Emotional distress [Not Recovered/Not Resolved]
  - Anhedonia [Not Recovered/Not Resolved]
  - Osteoarthritis [Not Recovered/Not Resolved]
  - Intervertebral disc degeneration [Not Recovered/Not Resolved]
  - Hypertension [Not Recovered/Not Resolved]
  - Restlessness [Unknown]

NARRATIVE: CASE EVENT DATE: 20150101
